FAERS Safety Report 16736794 (Version 1)
Quarter: 2019Q3

REPORT INFORMATION
  Report Type: Report from Study
  Country: CA (occurrence: CA)
  Receive Date: 20190823
  Receipt Date: 20190823
  Transmission Date: 20191005
  Serious: Yes (Hospitalization)
  Sender: FDA-Public Use
  Company Number: CA-ROCHE-2359069

PATIENT
  Age: 64 Year
  Sex: Female

DRUGS (31)
  1. RITUXAN [Suspect]
     Active Substance: RITUXIMAB
     Indication: ANKYLOSING SPONDYLITIS
  2. FOLIC ACID. [Concomitant]
     Active Substance: FOLIC ACID
  3. HYDROMORPHONE [Concomitant]
     Active Substance: HYDROMORPHONE
  4. METHYLPREDNISOLONE. [Concomitant]
     Active Substance: METHYLPREDNISOLONE
     Indication: PREMEDICATION
     Route: 042
     Dates: start: 20181026
  5. RITUXAN [Suspect]
     Active Substance: RITUXIMAB
     Indication: RHEUMATOID ARTHRITIS
     Dosage: DAY 1,15
     Route: 042
     Dates: start: 20181024
  6. RITUXAN [Suspect]
     Active Substance: RITUXIMAB
     Indication: SYSTEMIC LUPUS ERYTHEMATOSUS
  7. OXYGEN. [Concomitant]
     Active Substance: OXYGEN
     Indication: DYSPNOEA
  8. DORZOLAMIDE [Concomitant]
     Active Substance: DORZOLAMIDE
  9. COLACE [Concomitant]
     Active Substance: DOCUSATE SODIUM
  10. LANTUS [Concomitant]
     Active Substance: INSULIN GLARGINE
  11. SENOKOT [Concomitant]
     Active Substance: SENNOSIDES
  12. APIXABAN [Concomitant]
     Active Substance: APIXABAN
     Indication: THROMBOSIS
  13. LATANOPROST. [Concomitant]
     Active Substance: LATANOPROST
  14. PREDNISONE. [Concomitant]
     Active Substance: PREDNISONE
  15. RAMIPRIL. [Concomitant]
     Active Substance: RAMIPRIL
  16. DIPHENHYDRAMINE HCL [Concomitant]
     Active Substance: DIPHENHYDRAMINE HYDROCHLORIDE
     Indication: PREMEDICATION
     Route: 048
     Dates: start: 20181026
  17. DOCUSATE SODIUM. [Concomitant]
     Active Substance: DOCUSATE SODIUM
  18. MAGNESIUM [Concomitant]
     Active Substance: MAGNESIUM
  19. ELTROXIN [Concomitant]
     Active Substance: LEVOTHYROXINE
  20. SIMBRINZA [Concomitant]
     Active Substance: BRIMONIDINE TARTRATE\BRINZOLAMIDE
  21. VENTOLIN [Concomitant]
     Active Substance: ALBUTEROL SULFATE
  22. PANTOPRAZOLE [Concomitant]
     Active Substance: PANTOPRAZOLE
  23. ADVAIR HFA [Concomitant]
     Active Substance: FLUTICASONE PROPIONATE\SALMETEROL XINAFOATE
  24. ANTACIDS, OTHER COMBINATIONS [Concomitant]
     Active Substance: ANTACIDS NOS
  25. HYDROMORPH CONTIN [Concomitant]
     Active Substance: HYDROMORPHONE
  26. METHOTREXATE. [Concomitant]
     Active Substance: METHOTREXATE
  27. XARELTO [Concomitant]
     Active Substance: RIVAROXABAN
  28. ACETAMINOPHEN. [Concomitant]
     Active Substance: ACETAMINOPHEN
     Indication: PREMEDICATION
     Route: 048
     Dates: start: 20181026
  29. NOVORAPID [Concomitant]
     Active Substance: INSULIN ASPART
  30. DOMPERIDONE [Concomitant]
     Active Substance: DOMPERIDONE
  31. LASIX [Concomitant]
     Active Substance: FUROSEMIDE

REACTIONS (9)
  - Pulmonary thrombosis [Unknown]
  - Dyspnoea [Not Recovered/Not Resolved]
  - Dyspnoea [Not Recovered/Not Resolved]
  - Off label use [Unknown]
  - Influenza [Unknown]
  - Compression fracture [Unknown]
  - Thrombosis [Not Recovered/Not Resolved]
  - Asthenia [Not Recovered/Not Resolved]
  - Intentional product use issue [Unknown]

NARRATIVE: CASE EVENT DATE: 201903
